FAERS Safety Report 17403270 (Version 1)
Quarter: 2020Q1

REPORT INFORMATION
  Report Type: Spontaneous
  Country: JP (occurrence: JP)
  Receive Date: 20200211
  Receipt Date: 20200211
  Transmission Date: 20200409
  Serious: Yes (Other)
  Sender: FDA-Public Use
  Company Number: JP-PFIZER INC-2020052855

PATIENT
  Age: 86 Year
  Sex: Female

DRUGS (1)
  1. CELECOX [Suspect]
     Active Substance: CELECOXIB
     Indication: POST-TRAUMATIC PAIN
     Dosage: 400 MG, DAILY
     Route: 048
     Dates: start: 201912

REACTIONS (1)
  - Eczema [Recovered/Resolved]

NARRATIVE: CASE EVENT DATE: 201912
